FAERS Safety Report 6706224-2 (Version None)
Quarter: 2010Q2

REPORT INFORMATION
  Report Type: 
  Country: None (occurrence: None)
  Receive Date: 20100430
  Receipt Date: 20100430
  Transmission Date: 20101027
  Serious: Yes (Hospitalization)
  Sender: FDA-Public Use
  Company Number: None

PATIENT
  Sex: Female
  Weight: 82.3 kg

DRUGS (2)
  1. CYCLOPHOSPHAMIDE [Suspect]
     Dosage: 1200 MG
  2. DOXORUBICIN HCL [Suspect]
     Dosage: 120 MG

REACTIONS (4)
  - ADVERSE EVENT [None]
  - DEHYDRATION [None]
  - OEDEMA PERIPHERAL [None]
  - URINARY TRACT INFECTION [None]
